FAERS Safety Report 8231163-8 (Version None)
Quarter: 2012Q1

REPORT INFORMATION
  Report Type: 
  Country: None (occurrence: None)
  Receive Date: 20120323
  Receipt Date: 20120323
  Transmission Date: 20120608
  Serious: Yes (Death)
  Sender: FDA-Public Use
  Company Number: None

PATIENT
  Age: 65 Year
  Sex: Female
  Weight: 59.3 kg

DRUGS (3)
  1. CLOPIDOGREL [Concomitant]
     Dosage: 600 MG
     Route: 048
     Dates: start: 20111205, end: 20111205
  2. HEPARIN [Concomitant]
     Route: 051
  3. EPTIFIBATIDE [Suspect]
     Indication: PERCUTANEOUS CORONARY INTERVENTION
     Dosage: WEIGHT BASED BOLUS + INFUSION
     Route: 042
     Dates: start: 20111205, end: 20111205

REACTIONS (11)
  - CEREBRAL HAEMORRHAGE [None]
  - CONDITION AGGRAVATED [None]
  - NO THERAPEUTIC RESPONSE [None]
  - BRAIN MIDLINE SHIFT [None]
  - CARDIAC ARREST [None]
  - POSTURING [None]
  - RESTLESS LEGS SYNDROME [None]
  - BRADYCARDIA [None]
  - BRAIN HERNIATION [None]
  - AGITATION [None]
  - PUPIL FIXED [None]
